FAERS Safety Report 8375154-5 (Version None)
Quarter: 2012Q2

REPORT INFORMATION
  Report Type: 
  Country: None (occurrence: None)
  Receive Date: 20120521
  Receipt Date: 20120510
  Transmission Date: 20120825
  Serious: Yes (Death, Life-Threatening, Hospitalization)
  Sender: FDA-Public Use
  Company Number: SE-RB-040425-12

PATIENT
  Age: 26 Year
  Sex: Male

DRUGS (2)
  1. ACETAMINOPHEN [Suspect]
     Indication: PRODUCT USED FOR UNKNOWN INDICATION
     Dosage: UNKNOWN DOSAGE DETAILS
     Route: 065
  2. BUPRENORPHINE [Suspect]
     Indication: PRODUCT USED FOR UNKNOWN INDICATION
     Dosage: UNKNOWN DOSAGE DETAILS
     Route: 065

REACTIONS (5)
  - ALCOHOL POISONING [None]
  - LOSS OF CONSCIOUSNESS [None]
  - HYPOXIC-ISCHAEMIC ENCEPHALOPATHY [None]
  - TOXICITY TO VARIOUS AGENTS [None]
  - DYSPNOEA [None]
